FAERS Safety Report 8565588-8 (Version None)
Quarter: 2012Q3

REPORT INFORMATION
  Report Type: 
  Country: None (occurrence: None)
  Receive Date: 20120803
  Receipt Date: 20120731
  Transmission Date: 20120928
  Serious: Yes (Hospitalization)
  Sender: FDA-Public Use
  Company Number: BR-PFIZER INC-2011263956

PATIENT
  Age: 46 Year
  Sex: Female
  Weight: 58 kg

DRUGS (2)
  1. VARENICLINE [Suspect]
     Indication: SMOKING CESSATION THERAPY
     Dosage: 0.5 MG, EVERY 24 HOURS
     Route: 048
     Dates: start: 20111003, end: 20111001
  2. VARENICLINE [Suspect]
     Dosage: UNSPECIFIED DOSAGE, TWICE DAILY
     Route: 048
     Dates: start: 20111001, end: 20111007

REACTIONS (5)
  - BLOOD PRESSURE INCREASED [None]
  - RETCHING [None]
  - DIZZINESS [None]
  - NAUSEA [None]
  - PLATELET COUNT DECREASED [None]
